FAERS Safety Report 5799587-6 (Version None)
Quarter: 2008Q3

REPORT INFORMATION
  Report Type: 
  Country: None (occurrence: None)
  Receive Date: 20080703
  Receipt Date: 20080620
  Transmission Date: 20090109
  Serious: Yes (Other)
  Sender: FDA-Public Use
  Company Number: PHHY2008JP11865

PATIENT
  Age: 32 Year
  Sex: Male

DRUGS (6)
  1. CYCLOSPORINE [Suspect]
     Indication: HEART TRANSPLANT
     Dosage: UNK
     Route: 065
     Dates: end: 19950101
  2. CYCLOSPORINE [Suspect]
     Dosage: UNK
     Route: 048
     Dates: start: 19950101
  3. CERTICAN [Concomitant]
     Indication: HEART TRANSPLANT
     Dosage: UNK
     Route: 048
     Dates: start: 20050101
  4. AZATHIOPRINE [Concomitant]
     Indication: HEART TRANSPLANT
     Dosage: UNK
     Dates: end: 19970101
  5. MYCOPHENOLATE MOFETIL [Concomitant]
     Indication: HEART TRANSPLANT
     Dosage: UNK
     Dates: end: 19970101
  6. ASPIRIN [Concomitant]
     Dosage: UNK
     Dates: end: 19970101

REACTIONS (2)
  - CORONARY ARTERY DISEASE [None]
  - TRANSPLANT REJECTION [None]
